FAERS Safety Report 7936645-1 (Version None)
Quarter: 2011Q4

REPORT INFORMATION
  Report Type: 
  Country: None (occurrence: None)
  Receive Date: 20111121
  Receipt Date: 20111101
  Transmission Date: 20120403
  Serious: Yes (Life-Threatening, Hospitalization, Other)
  Sender: FDA-Public Use
  Company Number: BACL20110024

PATIENT
  Age: 48 Year
  Sex: Male

DRUGS (2)
  1. BACLOFEN [Suspect]
     Indication: PRODUCT USED FOR UNKNOWN INDICATION
     Dosage: ORAL
     Route: 048
  2. NEBIVOLOL HCL [Suspect]
     Indication: PRODUCT USED FOR UNKNOWN INDICATION
     Dosage: ORAL
     Route: 048

REACTIONS (6)
  - CARDIOGENIC SHOCK [None]
  - TOXICITY TO VARIOUS AGENTS [None]
  - MULTIPLE DRUG OVERDOSE [None]
  - PULSELESS ELECTRICAL ACTIVITY [None]
  - HYPOKALAEMIA [None]
  - CARDIAC ARREST [None]
